FAERS Safety Report 13026515 (Version 2)
Quarter: 2016Q4

REPORT INFORMATION
  Report Type: Spontaneous
  Country: CA (occurrence: CA)
  Receive Date: 20161214
  Receipt Date: 20161216
  Transmission Date: 20170207
  Serious: Yes (Other)
  Sender: FDA-Public Use
  Company Number: CA-GLAXOSMITHKLINE-CA2016GSK161976

PATIENT
  Sex: Female

DRUGS (3)
  1. NUCALA [Suspect]
     Active Substance: MEPOLIZUMAB
     Indication: ASTHMA
     Dosage: 100 MG, Z
     Route: 042
     Dates: start: 20161011
  2. VENTOLINE [Concomitant]
     Active Substance: ALBUTEROL
     Indication: ASTHMA
     Dosage: UNK
  3. VENTOLINE [Suspect]
     Active Substance: ALBUTEROL
     Indication: ASTHMA

REACTIONS (8)
  - Fatigue [Unknown]
  - Headache [Recovered/Resolved]
  - Rash [Recovered/Resolved]
  - Dry skin [Unknown]
  - Cough [Recovering/Resolving]
  - Bronchiectasis [Unknown]
  - Erythema [Unknown]
  - Hyperaesthesia [Unknown]
